FAERS Safety Report 18207894 (Version 1)
Quarter: 2020Q3

REPORT INFORMATION
  Report Type: Spontaneous
  Country: US (occurrence: US)
  Receive Date: 20200828
  Receipt Date: 20200828
  Transmission Date: 20201103
  Serious: No
  Sender: FDA-Public Use
  Company Number: US-USWM, LLC-UWM202007-000011

PATIENT
  Age: 51 Year
  Sex: Female

DRUGS (1)
  1. LUCEMYRA [Suspect]
     Active Substance: LOFEXIDINE
     Indication: PRODUCT USED FOR UNKNOWN INDICATION
     Dosage: NOT PROVIDED

REACTIONS (4)
  - Anxiety [Unknown]
  - Sleep disorder [Unknown]
  - Palpitations [Unknown]
  - Reaction to excipient [Unknown]
